FAERS Safety Report 11508203 (Version 1)
Quarter: 2015Q3

REPORT INFORMATION
  Report Type: Spontaneous
  Country: US (occurrence: US)
  Receive Date: 20150903
  Receipt Date: 20150903
  Transmission Date: 20151125
  Serious: No
  Sender: FDA-Public Use
  Company Number: US-ELI_LILLY_AND_COMPANY-US200911004768

PATIENT
  Age: 72 Year
  Sex: Female

DRUGS (5)
  1. HUMALOG [Suspect]
     Active Substance: INSULIN LISPRO
     Indication: DIABETES MELLITUS
     Dosage: 3 U, AS NEEDED
     Dates: start: 20070306
  2. LANTUS [Concomitant]
     Active Substance: INSULIN GLARGINE
  3. CHOLESTEROL- AND TRIGLYCERIDE REDUCERS [Concomitant]
     Active Substance: UNSPECIFIED INGREDIENT
  4. ANTIHYPERTENSIVES [Concomitant]
     Active Substance: UNSPECIFIED INGREDIENT
  5. VITAMINS [Concomitant]
     Active Substance: VITAMINS

REACTIONS (2)
  - Wrong technique in product usage process [Recovered/Resolved]
  - Blood glucose increased [Not Recovered/Not Resolved]

NARRATIVE: CASE EVENT DATE: 20091113
